FAERS Safety Report 8014869-5 (Version None)
Quarter: 2011Q4

REPORT INFORMATION
  Report Type: 
  Country: None (occurrence: None)
  Receive Date: 20111229
  Receipt Date: 20111227
  Transmission Date: 20120403
  Serious: No
  Sender: FDA-Public Use
  Company Number: US-PFIZER INC-2011314849

PATIENT
  Sex: Male

DRUGS (2)
  1. AZITHROMYCIN [Suspect]
     Indication: INFECTION
     Dosage: 200 MG, UNK
     Dates: start: 20111223
  2. AZITHROMYCIN [Suspect]
     Dosage: UNK, DAILY
     Dates: start: 20111201

REACTIONS (1)
  - DRUG INEFFECTIVE [None]
